FAERS Safety Report 4727621-0 (Version None)
Quarter: 2005Q3

REPORT INFORMATION
  Report Type: 
  Country: None (occurrence: None)
  Receive Date: 20050728
  Receipt Date: 20050727
  Transmission Date: 20060218
  Serious: Yes (Life-Threatening, Hospitalization)
  Sender: FDA-Public Use
  Company Number: CA-SANOFI-SYNTHELABO-F01200501341

PATIENT
  Sex: Male

DRUGS (7)
  1. OXALIPLATIN [Suspect]
     Indication: COLON CANCER
     Route: 042
     Dates: start: 20050628, end: 20050628
  2. CAPECITABINE [Suspect]
     Dosage: 2000 MG FOR 2 WEEKS, Q3W
     Route: 048
     Dates: start: 20050628
  3. BEVACIZUMAB [Suspect]
     Dosage: 658 MG 1X PER Q3W
     Route: 042
     Dates: start: 20050628, end: 20050628
  4. ELTROXIN [Concomitant]
     Dates: start: 20050504
  5. PANTOPRAZOLE SODIUM [Concomitant]
     Dates: start: 20050504
  6. METOPROLOL [Concomitant]
     Dates: start: 20050405
  7. ATACAND [Concomitant]
     Dates: start: 20050713

REACTIONS (4)
  - CEREBROVASCULAR ACCIDENT [None]
  - DIARRHOEA [None]
  - ESCHERICHIA INFECTION [None]
  - PYREXIA [None]
